FAERS Safety Report 7176855-7 (Version None)
Quarter: 2010Q4

REPORT INFORMATION
  Report Type: 
  Country: None (occurrence: None)
  Receive Date: 20101215
  Receipt Date: 20101215
  Transmission Date: 20110411
  Serious: Yes (Hospitalization)
  Sender: FDA-Public Use
  Company Number: None

PATIENT
  Age: 42 Year
  Sex: Male
  Weight: 124.7 kg

DRUGS (2)
  1. VELCADE [Suspect]
     Indication: B-CELL LYMPHOMA
     Dosage: 2.7 MG, ONCE, SUBQ
     Route: 058
     Dates: start: 20101210
  2. VELCADE [Suspect]
     Indication: B-CELL LYMPHOMA
     Dosage: 2.7 MG, ONCE, SUBQ
     Route: 058
     Dates: start: 20101213

REACTIONS (2)
  - LYMPHADENOPATHY MEDIASTINAL [None]
  - PLEURAL EFFUSION [None]
